FAERS Safety Report 16717900 (Version 2)
Quarter: 2019Q3

REPORT INFORMATION
  Report Type: Spontaneous
  Country: US (occurrence: US)
  Receive Date: 20190819
  Receipt Date: 20190820
  Transmission Date: 20191005
  Serious: Yes (Hospitalization)
  Sender: FDA-Public Use
  Company Number: US-ROMARKLABS-2019-US-000122

PATIENT
  Age: 72 Year
  Sex: Female

DRUGS (1)
  1. ALINIA [Suspect]
     Active Substance: NITAZOXANIDE
     Indication: MICROSPORIDIA INFECTION
     Dosage: 1 TABLET TWICE DAILY
     Route: 048

REACTIONS (2)
  - Nausea [Recovered/Resolved]
  - Hypophagia [Recovered/Resolved]
